FAERS Safety Report 7770438-3 (Version None)
Quarter: 2011Q3

REPORT INFORMATION
  Report Type: 
  Country: None (occurrence: None)
  Receive Date: 20110922
  Receipt Date: 20110125
  Transmission Date: 20111222
  Serious: No
  Sender: FDA-Public Use
  Company Number: US-ASTRAZENECA-2011SE04905

PATIENT
  Age: 61 Year
  Sex: Female
  Weight: 90.7 kg

DRUGS (5)
  1. LUNESTA [Concomitant]
     Indication: SLEEP DISORDER
  2. INSULIN [Concomitant]
     Indication: DIABETES MELLITUS
  3. SEROQUEL [Suspect]
     Route: 048
     Dates: start: 20100501
  4. SEROQUEL [Suspect]
     Indication: DEPRESSION
     Route: 048
     Dates: start: 20040101, end: 20100501
  5. BLOOD PRESSURE MEDICINE [Concomitant]

REACTIONS (10)
  - HEPATIC STEATOSIS [None]
  - DRUG DEPENDENCE [None]
  - INSOMNIA [None]
  - WEIGHT INCREASED [None]
  - PSYCHOMOTOR HYPERACTIVITY [None]
  - BLOOD GLUCOSE INCREASED [None]
  - DRUG DOSE OMISSION [None]
  - BLOOD PRESSURE INCREASED [None]
  - PANCREATIC ENLARGEMENT [None]
  - DEPRESSION [None]
